FAERS Safety Report 6022827-5 (Version None)
Quarter: 2008Q4

REPORT INFORMATION
  Report Type: 
  Country: None (occurrence: None)
  Receive Date: 20081230
  Receipt Date: 20080129
  Transmission Date: 20090506
  Serious: No
  Sender: FDA-Public Use
  Company Number: US-ABBOTT-08P-163-0435880-00

PATIENT
  Sex: Male
  Weight: 22.7 kg

DRUGS (1)
  1. OMNICEF [Suspect]
     Indication: EAR INFECTION
     Route: 048
     Dates: end: 20080114

REACTIONS (3)
  - JOINT SWELLING [None]
  - PRURITUS [None]
  - URTICARIA [None]
